FAERS Safety Report 9580174 (Version 2)
Quarter: 2014Q1

REPORT INFORMATION
  Report Type: Report from Study
  Country: US (occurrence: US)
  Receive Date: 20131002
  Receipt Date: 20140210
  Transmission Date: 20141002
  Serious: Yes (Hospitalization)
  Sender: FDA-Public Use
  Company Number: US-ABBVIE-13P-163-1151332-00

PATIENT
  Age: 52 Year
  Sex: Female

DRUGS (15)
  1. HUMIRA [Suspect]
     Indication: PSORIASIS
     Route: 058
     Dates: start: 20120828
  2. KLONOPIN [Concomitant]
     Indication: PRODUCT USED FOR UNKNOWN INDICATION
  3. LEVOTHYROXINE [Concomitant]
     Indication: PRODUCT USED FOR UNKNOWN INDICATION
  4. OMEPRAZOLE [Concomitant]
     Indication: PRODUCT USED FOR UNKNOWN INDICATION
  5. PREMARIN [Concomitant]
     Indication: PRODUCT USED FOR UNKNOWN INDICATION
  6. TRAZODONE [Concomitant]
     Indication: INSOMNIA
  7. SIMVASTATIN [Concomitant]
     Indication: PRODUCT USED FOR UNKNOWN INDICATION
     Dosage: HOUR OF SLEEP
  8. CLOBETASOL [Concomitant]
     Indication: PRODUCT USED FOR UNKNOWN INDICATION
  9. GEDON [Concomitant]
     Dates: end: 20130921
  10. GEDON [Concomitant]
     Dates: start: 20130921, end: 20130924
  11. GEDON [Concomitant]
     Dosage: 40 MG AT 5 PM AND 120 MG AT HOUR OF SLEEP
     Dates: start: 20130924
  12. LAMICTAL [Concomitant]
     Dosage: AT HOUR OF SLEEP
     Dates: end: 20130923
  13. LAMICTAL [Concomitant]
     Dosage: 25 MG, 2 TABS AT HOUR OF SLEEP
     Dates: start: 20130923
  14. HYDROXYZINE [Concomitant]
     Indication: ANXIETY
  15. PRAZOSIN [Concomitant]
     Indication: PRODUCT USED FOR UNKNOWN INDICATION
     Dosage: AT HOUR OF SLEEP

REACTIONS (2)
  - Depression [Unknown]
  - Hospitalisation [Unknown]
